FAERS Safety Report 6356176-2 (Version None)
Quarter: 2009Q3

REPORT INFORMATION
  Report Type: 
  Country: None (occurrence: None)
  Receive Date: 20090911
  Receipt Date: 20090911
  Transmission Date: 20100115
  Serious: No
  Sender: FDA-Public Use
  Company Number: None

PATIENT
  Age: 50 Year
  Sex: Male
  Weight: 68.4932 kg

DRUGS (2)
  1. LEXAPRO [Suspect]
     Indication: DEPRESSION
     Dosage: 10MG DAILY
     Dates: start: 20090823, end: 20090828
  2. LEXAPRO [Suspect]
     Dosage: 20MG DAILY
     Dates: start: 20090829, end: 20090830

REACTIONS (4)
  - ANORGASMIA [None]
  - EJACULATION FAILURE [None]
  - GENITAL DISORDER MALE [None]
  - MALE ORGASMIC DISORDER [None]
